FAERS Safety Report 16007486 (Version 1)
Quarter: 2019Q1

REPORT INFORMATION
  Report Type: Spontaneous
  Country: US (occurrence: US)
  Receive Date: 20190226
  Receipt Date: 20190226
  Transmission Date: 20190418
  Serious: No
  Sender: FDA-Public Use
  Company Number: US-IGSA-SR10007236

PATIENT
  Age: 29 Year
  Sex: Female
  Weight: 98 kg

DRUGS (15)
  1. PROLASTIN-C [Suspect]
     Active Substance: .ALPHA.1-PROTEINASE INHIBITOR HUMAN
     Dosage: 5460 MG, Q.WK.
     Route: 042
     Dates: start: 20181023, end: 20181023
  2. CYCLOBENZAPRINE. [Concomitant]
     Active Substance: CYCLOBENZAPRINE
  3. NEURONTIN [Concomitant]
     Active Substance: GABAPENTIN
  4. ATENOLOL. [Concomitant]
     Active Substance: ATENOLOL
  5. PROLASTIN-C [Suspect]
     Active Substance: .ALPHA.1-PROTEINASE INHIBITOR HUMAN
     Dosage: 5460 MG, Q.WK.
     Route: 042
     Dates: start: 20151118
  6. PREDNISONE. [Concomitant]
     Active Substance: PREDNISONE
     Indication: RESPIRATORY TRACT INFECTION
     Dosage: UNK
     Dates: start: 20181228
  7. PROLASTIN-C [Suspect]
     Active Substance: .ALPHA.1-PROTEINASE INHIBITOR HUMAN
     Dosage: 5880 MG, Q.WK.
     Route: 042
     Dates: start: 20181230, end: 20181230
  8. PROAIR HFA [Concomitant]
     Active Substance: ALBUTEROL SULFATE
  9. LORAZEPAM. [Concomitant]
     Active Substance: LORAZEPAM
  10. SERTRALINE [Concomitant]
     Active Substance: SERTRALINE HYDROCHLORIDE
  11. PROLASTIN-C [Suspect]
     Active Substance: .ALPHA.1-PROTEINASE INHIBITOR HUMAN
     Indication: ALPHA-1 ANTI-TRYPSIN DEFICIENCY
     Dosage: 5460 MG, Q.WK.
     Route: 042
     Dates: start: 20181028, end: 20181028
  12. ZITHROMAX [Concomitant]
     Active Substance: AZITHROMYCIN DIHYDRATE
     Indication: RESPIRATORY TRACT INFECTION
     Dosage: UNK
     Dates: start: 20181228
  13. OMEPRAZOLE. [Concomitant]
     Active Substance: OMEPRAZOLE
  14. PROTONIX [Concomitant]
     Active Substance: PANTOPRAZOLE SODIUM
  15. SULFAZINE [Concomitant]
     Active Substance: SULFASALAZINE

REACTIONS (3)
  - Somnolence [Recovering/Resolving]
  - Headache [Recovered/Resolved]
  - Chills [Recovered/Resolved]

NARRATIVE: CASE EVENT DATE: 20181023
